FAERS Safety Report 8613241 (Version 3)
Quarter: 2013Q2

REPORT INFORMATION
  Report Type: Spontaneous
  Country: US (occurrence: US)
  Receive Date: 20120613
  Receipt Date: 20130522
  Transmission Date: 20140414
  Serious: No
  Sender: FDA-Public Use
  Company Number: US-ASTRAZENECA-2012SE36970

PATIENT
  Age: 40 Year
  Sex: Female
  Weight: 49 kg

DRUGS (15)
  1. ZESTRIL [Suspect]
     Route: 048
  2. SEROQUEL [Suspect]
     Indication: BIPOLAR DISORDER
     Route: 048
     Dates: start: 2005
  3. SEROQUEL [Suspect]
     Indication: ANXIETY DISORDER
     Route: 048
     Dates: start: 2005
  4. SEROQUEL [Suspect]
     Indication: OBSESSIVE-COMPULSIVE DISORDER
     Route: 048
     Dates: start: 2005
  5. SEROQUEL [Suspect]
     Indication: POST-TRAUMATIC STRESS DISORDER
     Route: 048
     Dates: start: 2005
  6. SEROQUEL [Suspect]
     Indication: BIPOLAR DISORDER
     Route: 048
  7. SEROQUEL [Suspect]
     Indication: ANXIETY DISORDER
     Route: 048
  8. SEROQUEL [Suspect]
     Indication: OBSESSIVE-COMPULSIVE DISORDER
     Route: 048
  9. SEROQUEL [Suspect]
     Indication: POST-TRAUMATIC STRESS DISORDER
     Route: 048
  10. ASPIRIN [Suspect]
     Route: 065
  11. LYRICA [Concomitant]
     Indication: ARNOLD-CHIARI MALFORMATION
  12. LYRICA [Concomitant]
     Indication: FIBROMYALGIA
  13. CLONAZEPAM [Concomitant]
  14. PROMETHAZINE [Concomitant]
     Indication: NAUSEA
  15. TRAMADOL [Concomitant]
     Indication: PAIN

REACTIONS (9)
  - Anxiety [Unknown]
  - Insomnia [Unknown]
  - Fibromyalgia [Unknown]
  - Influenza [Unknown]
  - Hallucination, auditory [Unknown]
  - Malaise [Unknown]
  - Tremor [Unknown]
  - Drug hypersensitivity [Unknown]
  - Drug dose omission [Unknown]
